FAERS Safety Report 10102779 (Version 2)
Quarter: 2014Q2

REPORT INFORMATION
  Report Type: Other
  Country: US (occurrence: US)
  Receive Date: 20140424
  Receipt Date: 20140627
  Transmission Date: 20141212
  Serious: Yes (Hospitalization, Other)
  Sender: FDA-Public Use
  Company Number: US-GSKPPD-2014GSK000114

PATIENT
  Age: 63 Year
  Sex: Male

DRUGS (4)
  1. AVANDIA [Suspect]
     Indication: DIABETES MELLITUS
     Route: 048
     Dates: start: 19991223, end: 2006
  2. ASPIRIN [Concomitant]
     Route: 048
  3. PLAVIX [Concomitant]
     Route: 048
  4. LISINOPRIL [Concomitant]
     Route: 048

REACTIONS (1)
  - Coronary arterial stent insertion [Recovered/Resolved]
